FAERS Safety Report 24366281 (Version 4)
Quarter: 2024Q4

REPORT INFORMATION
  Report Type: Spontaneous
  Country: US (occurrence: US)
  Receive Date: 20240926
  Receipt Date: 20241211
  Transmission Date: 20250114
  Serious: No
  Sender: PFIZER
  Company Number: US-PFIZER INC-202400261069

PATIENT
  Age: 13 Year
  Sex: Female

DRUGS (2)
  1. GENOTROPIN [Suspect]
     Active Substance: SOMATROPIN
     Indication: Growth disorder
     Dosage: 0.5 MG
     Dates: start: 2023
  2. GENOTROPIN [Suspect]
     Active Substance: SOMATROPIN
     Dosage: 0.8 MG, 1X/DAY

REACTIONS (5)
  - Device mechanical issue [Unknown]
  - Device leakage [Unknown]
  - Device breakage [Not Recovered/Not Resolved]
  - Drug dose omission by device [Unknown]
  - Product prescribing error [Unknown]

NARRATIVE: CASE EVENT DATE: 20240918
